FAERS Safety Report 7909414 (Version 3)
Quarter: 2013Q1

REPORT INFORMATION
  Report Type: Spontaneous
  Country: US (occurrence: US)
  Receive Date: 20110421
  Receipt Date: 20130325
  Transmission Date: 20140127
  Serious: No
  Sender: FDA-Public Use
  Company Number: US-ASTRAZENECA-2010SE11300

PATIENT
  Age: 51 Year
  Sex: Female

DRUGS (3)
  1. TOPROL XL [Suspect]
     Route: 048
  2. TOPROL XL [Suspect]
     Route: 048
  3. XANAX [Concomitant]

REACTIONS (15)
  - Heart rate increased [Unknown]
  - Blood pressure increased [Unknown]
  - Weight decreased [Unknown]
  - Synovial cyst [Unknown]
  - Condition aggravated [Unknown]
  - Intervertebral disc protrusion [Unknown]
  - Arthropathy [Unknown]
  - Spinal deformity [Unknown]
  - Chest pain [Unknown]
  - Headache [Unknown]
  - Insomnia [Unknown]
  - Skin burning sensation [Unknown]
  - Hypoaesthesia [Unknown]
  - Weight increased [Unknown]
  - Hypoaesthesia [Unknown]
